FAERS Safety Report 20029333 (Version 4)
Quarter: 2022Q1

REPORT INFORMATION
  Report Type: Report from Study
  Country: US (occurrence: US)
  Receive Date: 20211103
  Receipt Date: 20220126
  Transmission Date: 20220423
  Serious: No
  Sender: FDA-Public Use
  Company Number: US-NOVARTISTESTPH-NVSC2021US250209

PATIENT
  Sex: Female

DRUGS (1)
  1. AFINITOR [Suspect]
     Active Substance: EVEROLIMUS
     Indication: Product used for unknown indication
     Dosage: 7.5 MG
     Route: 048

REACTIONS (7)
  - Feeling abnormal [Unknown]
  - Feeling hot [Unknown]
  - Amnesia [Unknown]
  - Acne [Unknown]
  - Fatigue [Unknown]
  - Headache [Unknown]
  - Stomatitis [Unknown]
